FAERS Safety Report 14304273 (Version 1)
Quarter: 2017Q4

REPORT INFORMATION
  Report Type: Spontaneous
  Country: US (occurrence: US)
  Receive Date: 20171219
  Receipt Date: 20171219
  Transmission Date: 20180321
  Serious: Yes (Hospitalization, Other)
  Sender: FDA-Public Use
  Company Number: US-OTSUKA-DJ20116317

PATIENT

DRUGS (6)
  1. ZYPREXA [Concomitant]
     Active Substance: OLANZAPINE
     Route: 065
     Dates: start: 19970428, end: 200407
  2. SEROQUEL [Concomitant]
     Active Substance: QUETIAPINE FUMARATE
     Route: 065
     Dates: start: 199905, end: 199905
  3. QUETIAPINE. [Concomitant]
     Active Substance: QUETIAPINE
     Dosage: 100 G, UNK
     Dates: start: 199905, end: 199905
  4. ABILIFY [Suspect]
     Active Substance: ARIPIPRAZOLE
     Indication: HALLUCINATION
     Route: 065
     Dates: start: 200507, end: 201111
  5. ALLOPURINOL. [Concomitant]
     Active Substance: ALLOPURINOL
     Route: 065
  6. OLANZAPINE. [Concomitant]
     Active Substance: OLANZAPINE
     Dosage: 28APR97-23OCT98  JUN99-JUL04
     Dates: start: 19970428, end: 200407

REACTIONS (2)
  - Dysphagia [Unknown]
  - Pneumonia aspiration [Unknown]
